FAERS Safety Report 16135341 (Version 2)
Quarter: 2019Q3

REPORT INFORMATION
  Report Type: Spontaneous
  Country: US (occurrence: US)
  Receive Date: 20190329
  Receipt Date: 20190806
  Transmission Date: 20191004
  Serious: Yes (Other)
  Sender: FDA-Public Use
  Company Number: US-SA-2019SA083192

PATIENT
  Age: 65 Year
  Sex: Female
  Weight: 81.6 kg

DRUGS (15)
  1. TENORMIN [Concomitant]
     Active Substance: ATENOLOL
     Dosage: 1 DF, QD
     Route: 048
     Dates: start: 20110713
  2. MULTIVITAMIN IRON [Concomitant]
     Dosage: 1 DF, QD
     Route: 048
     Dates: start: 20110713
  3. GLUCOSAMINE COMPLEX [CHONDROITIN SULFATE;GLUCOSAMINE] [Concomitant]
     Dosage: UNK
     Route: 048
     Dates: start: 20110713
  4. COMPAZINE [Concomitant]
     Active Substance: PROCHLORPERAZINE MALEATE
     Dosage: 2 DF, Q6H
     Route: 048
     Dates: start: 20110801
  5. ANASTROZOLE. [Concomitant]
     Active Substance: ANASTROZOLE
  6. TAXOTERE [Suspect]
     Active Substance: DOCETAXEL
     Indication: BREAST CANCER FEMALE
     Dosage: UNK UNK, Q3W
     Route: 042
     Dates: start: 20110801, end: 20110801
  7. TAXOTERE [Suspect]
     Active Substance: DOCETAXEL
     Dosage: UNK, Q3W
     Route: 042
     Dates: start: 20111111, end: 20111111
  8. LOTENSIN [Concomitant]
     Active Substance: BENAZEPRIL HYDROCHLORIDE
     Dosage: 1 DF, QD
     Route: 048
     Dates: start: 20110713
  9. VITAMIN B COMPLEX [Concomitant]
     Active Substance: CYANOCOBALAMIN\DEXPANTHENOL\NIACINAMIDE\PYRIDOXINE HYDROCHLORIDE\RIBOFLAVIN 5^-PHOSPHATE SODIUM\THIAMINE HYDROCHLORIDE\VITAMIN B COMPLEX
     Dosage: 1 DF, QD
     Route: 048
     Dates: start: 20110713
  10. VITAMIN D3 [Concomitant]
     Active Substance: CHOLECALCIFEROL
     Dosage: 1 DF, QD
     Route: 048
     Dates: start: 20110713
  11. ATIVAN [Concomitant]
     Active Substance: LORAZEPAM
     Dosage: 1 DF, QD
     Route: 048
     Dates: start: 20110721
  12. SINGULAIR [Concomitant]
     Active Substance: MONTELUKAST SODIUM
     Dosage: 1 DF, QD AT NIGHT
     Dates: start: 20110713
  13. NEOSAR [Concomitant]
     Active Substance: CYCLOPHOSPHAMIDE
     Indication: BREAST CANCER FEMALE
     Dosage: UNK
     Dates: start: 20110801, end: 20110801
  14. NEOSAR [Concomitant]
     Active Substance: CYCLOPHOSPHAMIDE
     Dosage: UNK
     Dates: start: 20111111, end: 20111111
  15. ARIMIDEX [Concomitant]
     Active Substance: ANASTROZOLE
     Dosage: 1 DF, QD
     Route: 048
     Dates: start: 20111111

REACTIONS (6)
  - Alopecia [Not Recovered/Not Resolved]
  - Emotional distress [Unknown]
  - Pain [Unknown]
  - Impaired quality of life [Unknown]
  - Psychological trauma [Unknown]
  - Anxiety [Unknown]

NARRATIVE: CASE EVENT DATE: 20110901
